FAERS Safety Report 9404587 (Version 2)
Quarter: 2013Q3

REPORT INFORMATION
  Report Type: Report from Study
  Country: CA (occurrence: CA)
  Receive Date: 20130717
  Receipt Date: 20130801
  Transmission Date: 20140515
  Serious: Yes (Hospitalization, Other)
  Sender: FDA-Public Use
  Company Number: CA-JNJFOC-20130706754

PATIENT
  Age: 14 Year
  Sex: Female
  Weight: 58.2 kg

DRUGS (3)
  1. REMICADE [Suspect]
     Indication: COLITIS ULCERATIVE
     Dosage: THIRD LOADING DOSE
     Route: 042
     Dates: start: 20130710
  2. REMICADE [Suspect]
     Indication: COLITIS ULCERATIVE
     Dosage: LOADING DOSE AT 0 AND 2 WEEK
     Route: 042
     Dates: start: 20130604
  3. REMICADE [Suspect]
     Indication: COLITIS ULCERATIVE
     Dosage: LOADING DOSE AT 0 AND 2 WEEK
     Route: 042
     Dates: start: 201305

REACTIONS (4)
  - Clostridium difficile infection [Unknown]
  - Hypotension [Unknown]
  - Malaise [Unknown]
  - Infusion related reaction [Unknown]
